FAERS Safety Report 11715035 (Version 1)
Quarter: 2015Q4

REPORT INFORMATION
  Report Type: Spontaneous
  Country: US (occurrence: US)
  Receive Date: 20151109
  Receipt Date: 20151109
  Transmission Date: 20160304
  Serious: No
  Sender: FDA-Public Use
  Company Number: US-BAUSCH-BL-2014-006384

PATIENT
  Age: 57 Year
  Sex: Male
  Weight: 86.26 kg

DRUGS (1)
  1. ZIRGAN [Suspect]
     Active Substance: GANCICLOVIR
     Indication: VIRAL INFECTION
     Dosage: RIGHT EYE, EVERY 2 HOURS
     Route: 047
     Dates: start: 20140920

REACTIONS (3)
  - Eye irritation [Recovering/Resolving]
  - Product physical consistency issue [Recovered/Resolved]
  - Ocular hyperaemia [Recovering/Resolving]

NARRATIVE: CASE EVENT DATE: 201409
